FAERS Safety Report 8687899 (Version 2)
Quarter: 2012Q4

REPORT INFORMATION
  Report Type: 
  Country: FR (occurrence: FR)
  Receive Date: 20120727
  Receipt Date: 20121001
  Transmission Date: 20130627
  Serious: Yes (Hospitalization, Other)
  Sender: FDA-Public Use
  Company Number: FR-UCBSA-062318

PATIENT
  Age: 77 Year
  Sex: Male

DRUGS (3)
  1. KEPPRA [Suspect]
     Indication: CLONIC CONVULSION
     Route: 048
     Dates: start: 20120612, end: 20120614
  2. URBANYL [Suspect]
     Dosage: IN THE EVENING
     Route: 048
     Dates: start: 20120609
  3. PRINCI B [Suspect]
     Indication: VITAMIN B COMPLEX DEFICIENCY
     Dosage: 1 TABLET TWICE DAILY
     Route: 048
     Dates: start: 20120611

REACTIONS (1)
  - Thrombocytopenia [Not Recovered/Not Resolved]
